FAERS Safety Report 17431550 (Version 1)
Quarter: 2020Q1

REPORT INFORMATION
  Report Type: Spontaneous
  Country: US (occurrence: US)
  Receive Date: 20200218
  Receipt Date: 20200218
  Transmission Date: 20200409
  Serious: No
  Sender: FDA-Public Use
  Company Number: US-PFIZER INC-2020069419

PATIENT
  Sex: Female

DRUGS (1)
  1. DESVENLAFAXINE SUCCINATE MONOHYDRATE [Suspect]
     Active Substance: DESVENLAFAXINE SUCCINATE
     Dosage: 25 MG, UNK

REACTIONS (6)
  - Thirst [Unknown]
  - Off label use [Unknown]
  - Wrong technique in product usage process [Unknown]
  - Malaise [Unknown]
  - Feeling abnormal [Unknown]
  - Constipation [Unknown]
